FAERS Safety Report 25028312 (Version 3)
Quarter: 2025Q2

REPORT INFORMATION
  Report Type: Spontaneous
  Country: US (occurrence: US)
  Receive Date: 20250301
  Receipt Date: 20250620
  Transmission Date: 20250716
  Serious: Yes (Hospitalization)
  Sender: SANOFI AVENTIS
  Company Number: US-SA-2024SA025247

PATIENT
  Age: 66 Year
  Sex: Female

DRUGS (5)
  1. DUPIXENT [Suspect]
     Active Substance: DUPILUMAB
     Indication: Chronic obstructive pulmonary disease
     Route: 058
     Dates: start: 20231229, end: 20231229
  2. DUPIXENT [Suspect]
     Active Substance: DUPILUMAB
     Indication: Asthma
     Dosage: 300 MG, QOW
     Route: 058
     Dates: start: 202401
  3. DUPIXENT [Suspect]
     Active Substance: DUPILUMAB
     Indication: Emphysema
     Dosage: 300 MG, QOW
     Route: 058
     Dates: start: 202412
  4. DUPIXENT [Suspect]
     Active Substance: DUPILUMAB
     Indication: Bronchitis chronic
  5. MOUNJARO [Suspect]
     Active Substance: TIRZEPATIDE

REACTIONS (8)
  - Chronic obstructive pulmonary disease [Unknown]
  - Dyspnoea exertional [Recovering/Resolving]
  - Nasal discharge discolouration [Recovering/Resolving]
  - Sputum discoloured [Recovering/Resolving]
  - Malaise [Unknown]
  - Injection site haemorrhage [Unknown]
  - Weight decreased [Unknown]
  - Product use in unapproved indication [Unknown]

NARRATIVE: CASE EVENT DATE: 20250101
